FAERS Safety Report 8348920-X (Version None)
Quarter: 2012Q2

REPORT INFORMATION
  Report Type: 
  Country: None (occurrence: None)
  Receive Date: 20120508
  Receipt Date: 20120504
  Transmission Date: 20120825
  Serious: Yes (Life-Threatening, Hospitalization, Other)
  Sender: FDA-Public Use
  Company Number: 2008SP016374

PATIENT
  Age: 79 Year
  Sex: Male
  Weight: 60 kg

DRUGS (7)
  1. LANTUS [Concomitant]
  2. VIRAFERONPEG [Suspect]
     Indication: HEPATITIS C
     Dosage: 0.5 MCG/ KG; QW;
     Dates: start: 20080116, end: 20080726
  3. RIBAVIRIN [Suspect]
     Indication: HEPATITIS C
     Dosage: 800 MG; QD;
     Dates: start: 20080116, end: 20080726
  4. DIAMICRON [Concomitant]
  5. EXFORGE [Concomitant]
  6. METFORMIN HCL [Concomitant]
  7. GLUCOR 50 [Concomitant]

REACTIONS (4)
  - HYPERTENSION [None]
  - FALL [None]
  - CEREBRAL HAEMORRHAGE [None]
  - HYPERGLYCAEMIA [None]
